FAERS Safety Report 5724662-1 (Version None)
Quarter: 2008Q2

REPORT INFORMATION
  Report Type: 
  Country: None (occurrence: None)
  Receive Date: 20080430
  Receipt Date: 20080430
  Transmission Date: 20081010
  Serious: No
  Sender: FDA-Public Use
  Company Number: None

PATIENT
  Age: 88 Year
  Sex: Female

DRUGS (2)
  1. DIGOXIN [Suspect]
     Dosage: 125MCG DAILY PO
     Route: 048
     Dates: start: 20080401, end: 20080425
  2. DIGOXIN [Suspect]
     Dosage: 250MCG DAILY PO
     Route: 048

REACTIONS (7)
  - CARDIAC FLUTTER [None]
  - CONFUSIONAL STATE [None]
  - FATIGUE [None]
  - JOINT SWELLING [None]
  - MALAISE [None]
  - MEMORY IMPAIRMENT [None]
  - PHARMACEUTICAL PRODUCT COMPLAINT [None]
